FAERS Safety Report 24246012 (Version 1)
Quarter: 2024Q3

REPORT INFORMATION
  Report Type: Spontaneous
  Country: BG (occurrence: BG)
  Receive Date: 20240824
  Receipt Date: 20240824
  Transmission Date: 20241017
  Serious: Yes (Other)
  Sender: AMGEN
  Company Number: BG-PFIZER INC-2018060644

PATIENT
  Age: 27 Year
  Sex: Male

DRUGS (12)
  1. FILGRASTIM [Suspect]
     Active Substance: FILGRASTIM
     Indication: Prophylaxis
     Dosage: UNK, CYCLIC
     Route: 065
     Dates: start: 201602, end: 201603
  2. FILGRASTIM [Suspect]
     Active Substance: FILGRASTIM
     Dosage: UNK, CYCLIC
     Route: 065
     Dates: start: 201603, end: 201604
  3. CYTARABINE [Suspect]
     Active Substance: CYTARABINE
     Indication: Prophylaxis
     Dosage: UNK UNK, CYCLIC
     Route: 029
     Dates: start: 201602, end: 201603
  4. CYTARABINE [Suspect]
     Active Substance: CYTARABINE
     Dosage: UNK UNK, CYCLIC
     Route: 029
     Dates: start: 201603, end: 201604
  5. CYTARABINE [Suspect]
     Active Substance: CYTARABINE
     Dosage: UNK UNK, CYCLIC
     Route: 065
     Dates: start: 201602, end: 201603
  6. CYTARABINE [Suspect]
     Active Substance: CYTARABINE
     Dosage: UNK UNK, CYCLIC
     Route: 029
     Dates: start: 201603, end: 201604
  7. IDARUBICIN HYDROCHLORIDE [Suspect]
     Active Substance: IDARUBICIN HYDROCHLORIDE
     Indication: Prophylaxis
     Dosage: UNK UNK, CYCLIC
     Route: 065
     Dates: start: 201603, end: 201604
  8. IDARUBICIN HYDROCHLORIDE [Suspect]
     Active Substance: IDARUBICIN HYDROCHLORIDE
     Dosage: UNK UNK, CYCLIC
     Route: 065
     Dates: start: 201602, end: 201603
  9. FLUDARABINE [Suspect]
     Active Substance: FLUDARABINE PHOSPHATE
     Indication: Prophylaxis
     Dosage: UNK, CYCLIC
     Route: 065
     Dates: start: 201602, end: 201603
  10. FLUDARABINE [Suspect]
     Active Substance: FLUDARABINE PHOSPHATE
     Dosage: UNK, CYCLIC
     Route: 065
     Dates: start: 201603, end: 201604
  11. METHOTREXATE [Suspect]
     Active Substance: METHOTREXATE
     Indication: Prophylaxis
     Dosage: UNK
     Route: 029
     Dates: start: 201602, end: 201603
  12. METHOTREXATE [Suspect]
     Active Substance: METHOTREXATE
     Dosage: UNK
     Route: 029
     Dates: start: 201603, end: 201604

REACTIONS (2)
  - Haematotoxicity [Unknown]
  - Febrile neutropenia [Unknown]
